FAERS Safety Report 21671428 (Version 3)
Quarter: 2024Q4

REPORT INFORMATION
  Report Type: Spontaneous
  Country: US (occurrence: US)
  Receive Date: 20221202
  Receipt Date: 20241107
  Transmission Date: 20250115
  Serious: No
  Sender: IPSEN BIOPHARMACEUTICALS, INC.
  Company Number: US-Ipsen Biopharmaceuticals, Inc.-2022-32506

PATIENT
  Age: 59 Year
  Sex: Male

DRUGS (1)
  1. SOMATULINE DEPOT [Suspect]
     Active Substance: LANREOTIDE ACETATE
     Indication: Acromegaly
     Dosage: 90MG/ 0.3ML INTO THE SKIN EVERY FOUR WEEKS
     Route: 058
     Dates: start: 20220802

REACTIONS (5)
  - Hyperhidrosis [Not Recovered/Not Resolved]
  - Fatigue [Unknown]
  - Injection site irritation [Unknown]
  - Functional gastrointestinal disorder [Unknown]
  - Headache [Unknown]

NARRATIVE: CASE EVENT DATE: 20220101
